FAERS Safety Report 11290733 (Version 1)
Quarter: 2015Q3

REPORT INFORMATION
  Report Type: Spontaneous
  Country: US (occurrence: None)
  Receive Date: 20150720
  Receipt Date: 20150720
  Transmission Date: 20151125
  Serious: No
  Sender: FDA-Public Use
  Company Number: None

PATIENT
  Age: 39 Year
  Sex: Female

DRUGS (1)
  1. LUPRON [Suspect]
     Active Substance: LEUPROLIDE ACETATE
     Indication: GENITAL DISORDER FEMALE
     Route: 030
     Dates: start: 20141126, end: 201507

REACTIONS (3)
  - Anxiety [None]
  - Depression [None]
  - Insomnia [None]

NARRATIVE: CASE EVENT DATE: 201506
